FAERS Safety Report 7465183-8 (Version None)
Quarter: 2011Q2

REPORT INFORMATION
  Report Type: 
  Country: None (occurrence: None)
  Receive Date: 20110509
  Receipt Date: 20110504
  Transmission Date: 20111010
  Serious: Yes (Hospitalization)
  Sender: FDA-Public Use
  Company Number: FR-PFIZER INC-2011095364

PATIENT
  Age: 4 Year
  Sex: Female
  Weight: 19 kg

DRUGS (1)
  1. PEDIATRIC ADVIL [Suspect]
     Dosage: UNK
     Route: 048
     Dates: start: 20110301, end: 20110301

REACTIONS (3)
  - EYELID OEDEMA [None]
  - LIP OEDEMA [None]
  - URTICARIA [None]
